FAERS Safety Report 13435193 (Version 3)
Quarter: 2017Q2

REPORT INFORMATION
  Report Type: Spontaneous
  Country: US (occurrence: US)
  Receive Date: 20170413
  Receipt Date: 20170524
  Transmission Date: 20170830
  Serious: No
  Sender: FDA-Public Use
  Company Number: US-GLAXOSMITHKLINE-US2017050469

PATIENT
  Age: 40 Year
  Sex: Female

DRUGS (2)
  1. VENTOLIN HFA [Suspect]
     Active Substance: ALBUTEROL SULFATE
     Dosage: 1 PUFF(S), PRN
  2. AEROSPAN [Concomitant]
     Active Substance: FLUNISOLIDE

REACTIONS (6)
  - Condition aggravated [Unknown]
  - Asthma [Unknown]
  - Drug ineffective [Unknown]
  - Extra dose administered [Unknown]
  - Drug effect incomplete [Unknown]
  - Product use issue [Unknown]

NARRATIVE: CASE EVENT DATE: 20170407
